FAERS Safety Report 8082166-8 (Version None)
Quarter: 2012Q1

REPORT INFORMATION
  Report Type: 
  Country: None (occurrence: None)
  Receive Date: 20120127
  Receipt Date: 20110121
  Transmission Date: 20120608
  Serious: No
  Sender: FDA-Public Use
  Company Number: US-ABBOTT-11P-163-0699944-00

PATIENT
  Age: 65 Year
  Sex: Female

DRUGS (8)
  1. MOBIC [Concomitant]
     Indication: PRODUCT USED FOR UNKNOWN INDICATION
  2. NEXIUM [Concomitant]
     Indication: PRODUCT USED FOR UNKNOWN INDICATION
  3. IRON [Concomitant]
     Indication: PRODUCT USED FOR UNKNOWN INDICATION
  4. TENORMIN [Concomitant]
     Indication: PRODUCT USED FOR UNKNOWN INDICATION
     Dosage: BID 100MG
  5. PLAQUENIL [Concomitant]
     Indication: PRODUCT USED FOR UNKNOWN INDICATION
     Dosage: BID 200MG
  6. HUMIRA [Suspect]
     Indication: RHEUMATOID ARTHRITIS
     Dates: start: 20100901, end: 20110121
  7. EDVIL [Concomitant]
     Indication: PRODUCT USED FOR UNKNOWN INDICATION
     Dosage: 100MG DAILY
  8. MULTI-VITAMIN [Concomitant]
     Indication: PRODUCT USED FOR UNKNOWN INDICATION

REACTIONS (6)
  - NASOPHARYNGITIS [None]
  - COUGH [None]
  - MIDDLE EAR EFFUSION [None]
  - PURULENT DISCHARGE [None]
  - SINUS CONGESTION [None]
  - SINUSITIS [None]
